FAERS Safety Report 5100330-4 (Version None)
Quarter: 2006Q3

REPORT INFORMATION
  Report Type: 
  Country: None (occurrence: None)
  Receive Date: 20060731
  Receipt Date: 20060516
  Transmission Date: 20061208
  Serious: No
  Sender: FDA-Public Use
  Company Number: 2006PV013938

PATIENT
  Sex: Female

DRUGS (4)
  1. BYETTA [Suspect]
     Indication: DIABETES MELLITUS NON-INSULIN-DEPENDENT
     Dosage: 10 MCG; BID; SC
     Route: 058
  2. BYETTA [Suspect]
     Indication: DRUG USE FOR UNKNOWN INDICATION
     Dosage: 10 MCG; BID; SC
     Route: 058
  3. SYNTHROID [Suspect]
     Indication: DRUG USE FOR UNKNOWN INDICATION
     Dosage: 150 MCG
  4. HIGH BLOOD PRESSURE MEDICATION [Suspect]
     Indication: HYPERTENSION

REACTIONS (3)
  - PROTEIN URINE PRESENT [None]
  - SENSATION OF BLOOD FLOW [None]
  - WEIGHT DECREASED [None]
